FAERS Safety Report 8211711-4 (Version None)
Quarter: 2012Q1

REPORT INFORMATION
  Report Type: 
  Country: None (occurrence: None)
  Receive Date: 20120315
  Receipt Date: 20120308
  Transmission Date: 20120608
  Serious: Yes (Other)
  Sender: FDA-Public Use
  Company Number: DE-B.I. PHARMACEUTICALS,INC./RIDGEFIELD-2012-DE-00692DE

PATIENT
  Age: 22 Year
  Sex: Male
  Weight: 115 kg

DRUGS (1)
  1. PRADAXA [Suspect]
     Dosage: 1500 MG
     Dates: start: 20120308, end: 20120308

REACTIONS (1)
  - OVERDOSE [None]
